FAERS Safety Report 6607383-2 (Version None)
Quarter: 2010Q1

REPORT INFORMATION
  Report Type: 
  Country: None (occurrence: None)
  Receive Date: 20100301
  Receipt Date: 20100219
  Transmission Date: 20100710
  Serious: Yes (Hospitalization)
  Sender: FDA-Public Use
  Company Number: 2006BI014449

PATIENT
  Age: 52 Year
  Sex: Female

DRUGS (2)
  1. AVONEX [Suspect]
     Indication: MULTIPLE SCLEROSIS
     Route: 030
     Dates: start: 20011026
  2. AVONEX [Suspect]
     Route: 030
     Dates: start: 20091124

REACTIONS (7)
  - CEREBROVASCULAR ACCIDENT [None]
  - DRUG INTERACTION [None]
  - FEELING ABNORMAL [None]
  - HYPERTENSION [None]
  - INFLUENZA LIKE ILLNESS [None]
  - MALAISE [None]
  - STRESS [None]
